FAERS Safety Report 10025308 (Version 1)
Quarter: 2014Q1

REPORT INFORMATION
  Report Type: Spontaneous
  Country: CA (occurrence: CA)
  Receive Date: 20140320
  Receipt Date: 20140320
  Transmission Date: 20141002
  Serious: Yes (Other)
  Sender: FDA-Public Use
  Company Number: CA-GLAXOSMITHKLINE-A1065715A

PATIENT
  Sex: Male

DRUGS (3)
  1. ZANTAC [Suspect]
     Indication: PRODUCT USED FOR UNKNOWN INDICATION
     Dosage: 300MG UNKNOWN
     Route: 065
  2. ZANTAC 75 [Suspect]
     Indication: PRODUCT USED FOR UNKNOWN INDICATION
     Dosage: 75MG UNKNOWN
     Route: 065
  3. ZANTAC OTC [Suspect]
     Indication: PRODUCT USED FOR UNKNOWN INDICATION
     Dosage: 150MG UNKNOWN
     Route: 065

REACTIONS (2)
  - Breast cyst [Recovered/Resolved]
  - Drug effect decreased [Recovered/Resolved]
